FAERS Safety Report 12710440 (Version 2)
Quarter: 2016Q4

REPORT INFORMATION
  Report Type: Spontaneous
  Country: FI (occurrence: FI)
  Receive Date: 20160902
  Receipt Date: 20161212
  Transmission Date: 20170207
  Serious: No
  Sender: FDA-Public Use
  Company Number: FI-009507513-1609FIN000682

PATIENT
  Age: 45 Year
  Sex: Female

DRUGS (2)
  1. NEXPLANON [Suspect]
     Active Substance: ETONOGESTREL
     Dosage: UNK
     Route: 058
     Dates: start: 201304, end: 20161124
  2. NEXPLANON [Suspect]
     Active Substance: ETONOGESTREL
     Dosage: UNK
     Route: 059
     Dates: start: 2007, end: 201009

REACTIONS (4)
  - Migration of implanted drug [Recovered/Resolved]
  - Weight increased [Unknown]
  - Incorrect drug administration duration [Unknown]
  - Complication associated with device [Recovered/Resolved]

NARRATIVE: CASE EVENT DATE: 201604
